FAERS Safety Report 5624548-7 (Version None)
Quarter: 2008Q1

REPORT INFORMATION
  Report Type: 
  Country: None (occurrence: None)
  Receive Date: 20080208
  Receipt Date: 20080125
  Transmission Date: 20080703
  Serious: Yes (Death)
  Sender: FDA-Public Use
  Company Number: US022463

PATIENT
  Age: 23 Year
  Sex: Male

DRUGS (3)
  1. FENTANYL [Suspect]
  2. METHADONE HCL [Suspect]
  3. BENZODIAZEPINE [Suspect]

REACTIONS (2)
  - DRUG ABUSE [None]
  - INCORRECT ROUTE OF DRUG ADMINISTRATION [None]
